FAERS Safety Report 25157778 (Version 3)
Quarter: 2025Q2

REPORT INFORMATION
  Report Type: Report from Study
  Country: CA (occurrence: CA)
  Receive Date: 20250403
  Receipt Date: 20250424
  Transmission Date: 20250716
  Serious: No
  Sender: ABBVIE
  Company Number: CA-ABBVIE-6203772

PATIENT
  Age: 35 Year
  Sex: Male

DRUGS (1)
  1. SKYRIZI [Suspect]
     Active Substance: RISANKIZUMAB-RZAA
     Indication: Psoriasis
     Route: 058
     Dates: start: 20230201

REACTIONS (2)
  - COVID-19 [Unknown]
  - Psoriasis [Recovered/Resolved]

NARRATIVE: CASE EVENT DATE: 20230101
